FAERS Safety Report 20379214 (Version 1)
Quarter: 2022Q1

REPORT INFORMATION
  Report Type: Spontaneous
  Country: DK (occurrence: DK)
  Receive Date: 20220126
  Receipt Date: 20220126
  Transmission Date: 20220423
  Serious: Yes (Hospitalization)
  Sender: FDA-Public Use
  Company Number: None

PATIENT
  Age: 90 Year
  Sex: Female
  Weight: 55 kg

DRUGS (10)
  1. DONEPEZIL [Suspect]
     Active Substance: DONEPEZIL
     Indication: Dementia Alzheimer^s type
     Route: 048
     Dates: start: 20210407, end: 20211112
  2. ATORVASTATIN [Concomitant]
     Active Substance: ATORVASTATIN
     Indication: Thrombosis prophylaxis
     Dosage: DOSE AND FREQUENCY NOT PROVIDED
     Dates: start: 20200724
  3. XARELTO [Concomitant]
     Active Substance: RIVAROXABAN
     Indication: Thrombosis prophylaxis
     Dosage: DOSE AND FREQUENCY NOT PROVIDED
     Dates: start: 20160725
  4. CANDESARTAN ^KRKA^ [Concomitant]
     Indication: Hypertension
     Dosage: DOSE AND FREQUENCY NOT PROVIDED
     Dates: start: 20201210
  5. MAGNESIUM HYDROXIDE [Concomitant]
     Active Substance: MAGNESIUM HYDROXIDE
     Indication: Constipation
     Dosage: DOSE AND FREQUENCY NOT PROVIDED
     Dates: start: 20200224
  6. OLANZAPIN ^ACCORD^ [Concomitant]
     Indication: Sedative therapy
     Dosage: DOSE AND FREQUENCY NOT PROVIDED
     Dates: start: 20200604
  7. POTASSIUM CHLORIDE [Concomitant]
     Active Substance: POTASSIUM CHLORIDE
     Indication: Hypokalaemia
     Dosage: DOSE AND FREQUENCY NOT PROVIDED
     Dates: start: 20200217
  8. LEVOTHYROXINE [Concomitant]
     Active Substance: LEVOTHYROXINE
     Indication: Hypothyroidism
     Dosage: DOSE AND FREQUENCY NOT PROVIDED
     Dates: start: 20130910
  9. ATENODAN [Concomitant]
     Indication: Hypertension
     Dosage: DOSE AND FREQUENCY NOT PROVIDED
     Dates: start: 20130910
  10. FELODIPIN ^ACTAVIS^ [Concomitant]
     Indication: Hypertension
     Dosage: DOSE AND FREQUENCY NOT PROVIDED
     Dates: start: 20180623

REACTIONS (3)
  - Diarrhoea [Recovering/Resolving]
  - Decreased appetite [Unknown]
  - Malaise [Recovering/Resolving]

NARRATIVE: CASE EVENT DATE: 20210101
